FAERS Safety Report 8793779 (Version 2)
Quarter: 2013Q1

REPORT INFORMATION
  Report Type: Report from Study
  Country: JP (occurrence: JP)
  Receive Date: 20120917
  Receipt Date: 20130115
  Transmission Date: 20140127
  Serious: Yes (Other)
  Sender: FDA-Public Use
  Company Number: JP-VERTEX PHARMACEUTICAL INC.-AE-2012-006655

PATIENT
  Age: 38 Year
  Sex: Male

DRUGS (12)
  1. VX-950 (TELAPREVIR) [Suspect]
     Indication: CHRONIC HEPATITIS C
     Dosage: 2250 MG, QD
     Route: 048
     Dates: start: 20120302, end: 20120524
  2. PEGINTERFERON ALFA-2B [Suspect]
     Indication: CHRONIC HEPATITIS C
     Dosage: 1.5 ?G/KG, QW
     Route: 058
     Dates: start: 20120302, end: 20120316
  3. PEGINTERFERON ALFA-2B [Suspect]
     Dosage: 0.86 ?G/KG, QW
     Route: 058
     Dates: start: 20120323, end: 20120324
  4. PEGINTERFERON ALFA-2B [Suspect]
     Dosage: 1.5 ?G/KG, QW
     Route: 058
     Dates: start: 20120330, end: 20120607
  5. PEGINTERFERON ALFA-2B [Suspect]
     Dosage: .69 ?G/KG, QW
     Route: 058
     Dates: start: 20120608, end: 20120614
  6. PEGINTERFERON ALFA-2B [Suspect]
     Dosage: 1.5 ?G/KG, QW
     Route: 058
     Dates: start: 20120615, end: 20120705
  7. PEGINTERFERON ALFA-2B [Suspect]
     Dosage: .69 ?G/KG, QW
     Route: 058
     Dates: start: 20120706, end: 20120712
  8. PEGINTERFERON ALFA-2B [Suspect]
     Dosage: 1.5 ?G/KG, QW
     Route: 058
     Dates: start: 20120713, end: 20120802
  9. PEGINTERFERON ALFA-2B [Suspect]
     Dosage: .86 ?G/KG, QW
     Route: 058
     Dates: start: 20120803, end: 20120810
  10. RIBAVIRIN [Concomitant]
     Dosage: 600 MG, QD
     Route: 048
     Dates: start: 20120302, end: 20120816
  11. URSO 100 [Concomitant]
     Dosage: 600 MG, QD
     Route: 048
  12. LOXONIN [Concomitant]
     Dosage: 60 MG, PRN
     Route: 048
     Dates: start: 20120302, end: 20120525

REACTIONS (4)
  - Neutrophil count decreased [Recovered/Resolved]
  - Neutrophil count decreased [Recovered/Resolved]
  - Neutrophil count decreased [Recovered/Resolved]
  - Neutrophil count decreased [Recovered/Resolved]
